FAERS Safety Report 13883382 (Version 2)
Quarter: 2017Q3

REPORT INFORMATION
  Report Type: Spontaneous
  Country: IT (occurrence: IT)
  Receive Date: 20170818
  Receipt Date: 20170915
  Transmission Date: 20171127
  Serious: Yes (Other)
  Sender: FDA-Public Use
  Company Number: IT-US WORLDMEDS, LLC-USW201708-001161

PATIENT
  Age: 80 Year
  Sex: Male

DRUGS (4)
  1. XADAGO [Suspect]
     Active Substance: SAFINAMIDE MESYLATE
     Dates: start: 201609, end: 201703
  2. MADOPAR [Concomitant]
     Active Substance: BENSERAZIDE HYDROCHLORIDE\LEVODOPA
     Indication: PARKINSON^S DISEASE
     Dates: start: 201609, end: 201703
  3. MADOPAR [Concomitant]
     Active Substance: BENSERAZIDE HYDROCHLORIDE\LEVODOPA
     Dates: start: 201703
  4. XADAGO [Suspect]
     Active Substance: SAFINAMIDE MESYLATE
     Indication: PARKINSON^S DISEASE
     Route: 048
     Dates: start: 201703

REACTIONS (17)
  - Red blood cell count decreased [Recovered/Resolved]
  - Vertigo [Recovered/Resolved]
  - Weight decreased [Recovered/Resolved]
  - Haemoglobin decreased [Recovered/Resolved]
  - Flatulence [Recovered/Resolved]
  - Drug ineffective [Unknown]
  - Hypoaesthesia [Recovered/Resolved]
  - Constipation [Recovered/Resolved]
  - Pain in extremity [Recovered/Resolved]
  - Peripheral swelling [Recovered/Resolved]
  - Muscle rigidity [Recovered/Resolved]
  - Gait disturbance [Recovered/Resolved]
  - Diplopia [Recovered/Resolved]
  - Nasal congestion [Recovered/Resolved]
  - Speech disorder [Recovered/Resolved]
  - Dry mouth [Recovered/Resolved]
  - Fatigue [Recovered/Resolved]

NARRATIVE: CASE EVENT DATE: 201705
